FAERS Safety Report 24811703 (Version 1)
Quarter: 2025Q1

REPORT INFORMATION
  Report Type: Spontaneous
  Country: CN (occurrence: CN)
  Receive Date: 20250106
  Receipt Date: 20250106
  Transmission Date: 20250409
  Serious: Yes (Other)
  Sender: PFIZER
  Company Number: CN-PFIZER INC-PV202400170534

PATIENT
  Age: 5 Year
  Sex: Male
  Weight: 15.8 kg

DRUGS (2)
  1. LORBRENA [Suspect]
     Active Substance: LORLATINIB
     Indication: Ganglioneuroblastoma
     Dosage: 50 MG, 1X/DAY
     Route: 048
     Dates: start: 20240917, end: 20241101
  2. NAXITAMAB [Concomitant]
     Active Substance: NAXITAMAB
     Indication: Immunomodulatory therapy
     Dosage: 48 MG, 1X/DAY
     Route: 042
     Dates: start: 20241023, end: 20241031

REACTIONS (3)
  - Arrhythmia [Unknown]
  - Heart rate increased [Unknown]
  - Off label use [Unknown]

NARRATIVE: CASE EVENT DATE: 20240917
